FAERS Safety Report 25316885 (Version 2)
Quarter: 2025Q2

REPORT INFORMATION
  Report Type: Spontaneous
  Country: FR (occurrence: FR)
  Receive Date: 20250515
  Receipt Date: 20250516
  Transmission Date: 20250717
  Serious: Yes (Life-Threatening, Hospitalization, Other)
  Sender: CELLTRION
  Company Number: FR-AstraZeneca-2023A262604

PATIENT

DRUGS (12)
  1. INFLIXIMAB [Suspect]
     Active Substance: INFLIXIMAB
     Indication: Autoimmune colitis
     Route: 042
     Dates: start: 20231031, end: 20231031
  2. INFLIXIMAB [Suspect]
     Active Substance: INFLIXIMAB
     Route: 042
     Dates: start: 20231031, end: 20231031
  3. IMFINZI [Suspect]
     Active Substance: DURVALUMAB
     Indication: Hepatocellular carcinoma
     Route: 042
     Dates: start: 20230919, end: 20230919
  4. IMFINZI [Suspect]
     Active Substance: DURVALUMAB
     Route: 042
     Dates: start: 20230919, end: 20230919
  5. IMFINZI [Suspect]
     Active Substance: DURVALUMAB
     Route: 042
     Dates: start: 20230919, end: 20230919
  6. IMFINZI [Suspect]
     Active Substance: DURVALUMAB
     Route: 042
     Dates: start: 20230919, end: 20230919
  7. IMJUDO [Suspect]
     Active Substance: TREMELIMUMAB\TREMELIMUMAB-ACTL
     Indication: Hepatocellular carcinoma
     Route: 042
     Dates: start: 20230919, end: 20230919
  8. IMJUDO [Suspect]
     Active Substance: TREMELIMUMAB\TREMELIMUMAB-ACTL
     Route: 042
     Dates: start: 20230919, end: 20230919
  9. IMJUDO [Suspect]
     Active Substance: TREMELIMUMAB\TREMELIMUMAB-ACTL
     Route: 042
     Dates: start: 20230919, end: 20230919
  10. IMJUDO [Suspect]
     Active Substance: TREMELIMUMAB\TREMELIMUMAB-ACTL
     Route: 042
     Dates: start: 20230919, end: 20230919
  11. METHYLPREDNISOLONE [Suspect]
     Active Substance: METHYLPREDNISOLONE
     Indication: Autoimmune colitis
     Dates: start: 20231019, end: 20231024
  12. METHYLPREDNISOLONE [Suspect]
     Active Substance: METHYLPREDNISOLONE
     Dates: start: 20231024, end: 20231031

REACTIONS (11)
  - Autoimmune colitis [Unknown]
  - Large intestine perforation [Recovered/Resolved]
  - Acute kidney injury [Unknown]
  - Coagulopathy [Unknown]
  - Rectal haemorrhage [Unknown]
  - Hepatic cytolysis [Unknown]
  - Hepatic failure [Unknown]
  - Infection [Unknown]
  - Diarrhoea [Unknown]
  - Septic shock [Unknown]
  - Peritonitis [Unknown]

NARRATIVE: CASE EVENT DATE: 20231102
